FAERS Safety Report 16246459 (Version 2)
Quarter: 2019Q2

REPORT INFORMATION
  Report Type: Report from Study
  Country: CN (occurrence: CN)
  Receive Date: 20190427
  Receipt Date: 20190429
  Transmission Date: 20190711
  Serious: Yes (Hospitalization)
  Sender: FDA-Public Use
  Company Number: CN-AMGEN-CHNCT2019064688

PATIENT
  Age: 53 Year
  Sex: Female
  Weight: 52 kg

DRUGS (16)
  1. CYTARABINE. [Concomitant]
     Active Substance: CYTARABINE
     Dosage: 50-100 MILLIGRAM
     Route: 037
     Dates: start: 20190311, end: 20190422
  2. BLINATUMOMAB [Suspect]
     Active Substance: BLINATUMOMAB
     Indication: B PRECURSOR TYPE ACUTE LEUKAEMIA
     Dosage: 28 MICROGRAM, (PER PROTOCOL)
     Route: 042
     Dates: start: 20190313
  3. SODIUM BICARBONATE. [Concomitant]
     Active Substance: SODIUM BICARBONATE
     Dosage: 60 MILLILITER
     Route: 042
     Dates: start: 20190312, end: 20190312
  4. CASPOFUNGIN ACETATE. [Concomitant]
     Active Substance: CASPOFUNGIN ACETATE
     Dosage: 50 MILLIGRAM
     Route: 042
     Dates: start: 20190312, end: 20190411
  5. LIDOCAINE. [Concomitant]
     Active Substance: LIDOCAINE
     Dosage: 100 MILLIGRAM
     Route: 058
     Dates: start: 20190307, end: 20190410
  6. POVIDONE-IODINE. [Concomitant]
     Active Substance: POVIDONE-IODINE
     Dosage: 10 MILLILITER
     Route: 050
     Dates: start: 20190312, end: 20190312
  7. PIPERACILLIN AND TAZOBACTAM [Concomitant]
     Active Substance: PIPERACILLIN SODIUM\TAZOBACTAM SODIUM
     Dosage: 4.5 GRAM
     Route: 042
     Dates: start: 20190312, end: 20190411
  8. COMPOUND GLYCYRRHIZIN [CYSTEINE;GLYCINE;GLYCYRRHIZIC ACID] [Concomitant]
     Dosage: 60 MILLIGRAM
     Route: 042
     Dates: start: 20190316, end: 20190318
  9. ESTAZOLAM. [Concomitant]
     Active Substance: ESTAZOLAM
     Dosage: 1 MILLIGRAM
     Route: 048
     Dates: start: 20190308, end: 20190418
  10. TORASEMIDE [Concomitant]
     Active Substance: TORSEMIDE
     Dosage: 10 MILLIGRAM
     Route: 042
     Dates: start: 20190312, end: 20190312
  11. DEXAMETHASONE. [Concomitant]
     Active Substance: DEXAMETHASONE
     Dosage: 5-20 MILLIGRAM
     Dates: start: 20190311, end: 20190422
  12. FILGRASTIM [Concomitant]
     Active Substance: FILGRASTIM
     Dosage: 150-300 MICROGRAM
     Route: 058
     Dates: start: 20190315, end: 20190411
  13. ZOLPIDEM TARTRATE. [Concomitant]
     Active Substance: ZOLPIDEM TARTRATE
     Dosage: 10 MILLIGRAM
     Route: 048
     Dates: start: 20190308, end: 20190418
  14. PANTOPRAZOLE SODIUM. [Concomitant]
     Active Substance: PANTOPRAZOLE SODIUM
     Dosage: 40 MILLIGRAM
     Route: 042
     Dates: start: 20190312, end: 20190312
  15. CARBAZOCHROME SODIUM SULFONATE;SODIUM CHLORIDE [Concomitant]
     Dosage: 80 MILLIGRAM
     Route: 042
     Dates: start: 20190325, end: 20190325
  16. COMPOUND SODIUM BICARBONATE [SODIUM BICARBONATE] [Concomitant]
     Dosage: UNK
     Route: 050
     Dates: start: 20190329, end: 20190331

REACTIONS (1)
  - Central nervous system leukaemia [Recovered/Resolved]

NARRATIVE: CASE EVENT DATE: 20190410
